FAERS Safety Report 8903683 (Version 1)
Quarter: 2012Q4

REPORT INFORMATION
  Report Type: 
  Country: US (occurrence: US)
  Receive Date: 20121113
  Receipt Date: 20121113
  Transmission Date: 20130627
  Serious: No
  Sender: FDA-Public Use
  Company Number: US-AMGEN-USASP2012010081

PATIENT
  Age: 47 Year
  Sex: Male
  Weight: 86.17 kg

DRUGS (8)
  1. ENBREL [Suspect]
     Indication: ANKYLOSING SPONDYLITIS
     Dosage: 50 mg, qwk
     Route: 058
     Dates: start: 201004, end: 201010
  2. HYDROCODONE [Concomitant]
  3. PREDNISONE [Concomitant]
  4. FOLIC ACID [Concomitant]
  5. LISINOPRIL [Concomitant]
  6. CYMBALTA [Concomitant]
  7. LYRICA [Concomitant]
  8. CYCLOBENZAPRINE [Concomitant]

REACTIONS (2)
  - Liver function test abnormal [Unknown]
  - Drug ineffective [Unknown]
